FAERS Safety Report 8855462 (Version 1)
Quarter: 2012Q4

REPORT INFORMATION
  Report Type: 
  Country: US (occurrence: US)
  Receive Date: 20121023
  Receipt Date: 20121023
  Transmission Date: 20130627
  Serious: No
  Sender: FDA-Public Use
  Company Number: US-AMGEN-USASP2012059580

PATIENT
  Age: 33 Year
  Sex: Female
  Weight: 77.1 kg

DRUGS (8)
  1. ENBREL [Suspect]
     Indication: RHEUMATOID ARTHRITIS
     Dosage: 50 mg, qwk
     Route: 058
  2. METHOTREXATE [Concomitant]
     Dosage: 50 mg/ 2ML UNK
     Route: 058
  3. FOLIC ACID [Concomitant]
     Dosage: UNK
     Route: 048
  4. PREVACID [Concomitant]
     Dosage: 15 mg, DR UNK
     Route: 048
  5. ZOLOFT [Concomitant]
     Dosage: 50 mg, UNK
     Route: 048
  6. PREDNISONE [Concomitant]
     Dosage: 10 mg, UNK
     Route: 048
  7. OXYCODON [Concomitant]
     Dosage: 10 mg, UNK
     Route: 048
  8. PERCOCET                           /00446701/ [Concomitant]
     Dosage: 10-325 mg, UNK
     Route: 048

REACTIONS (1)
  - Urticaria [Unknown]
